FAERS Safety Report 21640500 (Version 1)
Quarter: 2022Q4

REPORT INFORMATION
  Report Type: Spontaneous
  Country: US (occurrence: US)
  Receive Date: 20221124
  Receipt Date: 20221124
  Transmission Date: 20230113
  Serious: Yes (Other)
  Sender: FDA-Public Use
  Company Number: US-JNJFOC-20221140396

PATIENT
  Age: 9 Decade
  Sex: Female
  Weight: 73.094 kg

DRUGS (4)
  1. XARELTO [Suspect]
     Active Substance: RIVAROXABAN
     Indication: Atrial fibrillation
     Dosage: PRESCRIPTION NUMBER 694911
     Route: 048
     Dates: start: 2020
  2. XARELTO [Suspect]
     Active Substance: RIVAROXABAN
     Indication: Cerebrovascular accident prophylaxis
  3. XARELTO [Suspect]
     Active Substance: RIVAROXABAN
     Indication: Ischaemic heart disease prophylaxis
  4. XARELTO [Suspect]
     Active Substance: RIVAROXABAN
     Indication: Anticoagulant therapy

REACTIONS (6)
  - Haemorrhage [Unknown]
  - Skin haemorrhage [Unknown]
  - Catheter site haemorrhage [Recovered/Resolved]
  - Skin discolouration [Unknown]
  - Catheter site ulcer [Recovering/Resolving]
  - Impaired healing [Not Recovered/Not Resolved]
